FAERS Safety Report 9174076 (Version 1)
Quarter: 2013Q1

REPORT INFORMATION
  Report Type: Spontaneous
  Country: US (occurrence: US)
  Receive Date: 20130320
  Receipt Date: 20130320
  Transmission Date: 20140127
  Serious: No
  Sender: FDA-Public Use
  Company Number: US-PFIZER INC-2013091881

PATIENT
  Sex: Female

DRUGS (2)
  1. CHANTIX [Suspect]
     Dosage: UNK, DAILY
     Route: 048
  2. CHANTIX [Suspect]
     Dosage: UNK, 2X/DAY
     Route: 048

REACTIONS (2)
  - Abnormal dreams [Unknown]
  - Migraine [Unknown]
